FAERS Safety Report 22236378 (Version 1)
Quarter: 2023Q2

REPORT INFORMATION
  Report Type: Spontaneous
  Country: US (occurrence: None)
  Receive Date: 20230420
  Receipt Date: 20230420
  Transmission Date: 20230721
  Serious: No
  Sender: FDA-Public Use
  Company Number: US-ROCHE-3214713

PATIENT
  Sex: Female
  Weight: 76.272 kg

DRUGS (7)
  1. AVASTIN [Suspect]
     Active Substance: BEVACIZUMAB
     Indication: Ovarian cancer
     Route: 042
     Dates: start: 202205, end: 20220914
  2. ELIQUIS [Concomitant]
     Active Substance: APIXABAN
     Indication: Anticoagulant therapy
     Route: 048
     Dates: start: 202207
  3. ELIQUIS [Concomitant]
     Active Substance: APIXABAN
     Route: 048
     Dates: start: 202208
  4. CYANOCOBALAMIN\DEXPANTHENOL\NIACINAMIDE\PYRIDOXINE HYDROCHLORIDE\RIBOF [Concomitant]
     Active Substance: CYANOCOBALAMIN\DEXPANTHENOL\NIACINAMIDE\PYRIDOXINE HYDROCHLORIDE\RIBOFLAVIN 5^-PHOSPHATE SODIUM\THIA
     Indication: Vegan
     Route: 048
  5. SELENIUM [Concomitant]
     Active Substance: SELENIUM
     Route: 048
  6. IODINE [Concomitant]
     Active Substance: IODINE
     Route: 048
  7. BERBERINE [Concomitant]
     Active Substance: BERBERINE
     Indication: Vegan
     Route: 048

REACTIONS (1)
  - Phlebitis [Unknown]
